FAERS Safety Report 20920660 (Version 1)
Quarter: 2022Q2

REPORT INFORMATION
  Report Type: Spontaneous
  Country: US (occurrence: None)
  Receive Date: 20220606
  Receipt Date: 20220606
  Transmission Date: 20220721
  Serious: Yes (Hospitalization)
  Sender: FDA-Public Use
  Company Number: None

PATIENT
  Age: 68 Year
  Sex: Male

DRUGS (6)
  1. IMATINIB MESYLATE [Suspect]
     Active Substance: IMATINIB MESYLATE
  2. ASPIRIN LOW TAB [Concomitant]
  3. LIPITOR TAB [Concomitant]
  4. PRILOSEC OTC TAB [Concomitant]
  5. SERTRALINE POW [Concomitant]
  6. VERAPAMIL POW [Concomitant]

REACTIONS (1)
  - Surgery [None]

NARRATIVE: CASE EVENT DATE: 20220510
